FAERS Safety Report 24031543 (Version 2)
Quarter: 2024Q3

REPORT INFORMATION
  Report Type: Spontaneous
  Country: SE (occurrence: SE)
  Receive Date: 20240629
  Receipt Date: 20240701
  Transmission Date: 20241017
  Serious: Yes (Other)
  Sender: JOHNSON AND JOHNSON
  Company Number: SE-DRKADE-20240213

PATIENT
  Age: 68 Year
  Sex: Female

DRUGS (2)
  1. IBUPROFEN [Suspect]
     Active Substance: IBUPROFEN
     Indication: Product used for unknown indication
     Dosage: 1 - 2 TABLETS WHEN NEEDED
     Route: 048
  2. ESTRADIOL VALERATE\NORETHINDRONE ACETATE [Suspect]
     Active Substance: ESTRADIOL VALERATE\NORETHINDRONE ACETATE
     Indication: Menopause
     Dosage: THE PATIENT HAS BEEN TAKING 1 TABLET OF CLIOVELLE 1MG/0,5MG DAILY SINCE SHE WAS 60 YEARS OLD. AT THE
     Route: 048
     Dates: start: 2016, end: 20240607

REACTIONS (5)
  - Ophthalmic vein thrombosis [Not Recovered/Not Resolved]
  - Ligament sprain [Unknown]
  - Contraindicated product administered [Unknown]
  - Vision blurred [Recovering/Resolving]
  - Hypertension [Unknown]

NARRATIVE: CASE EVENT DATE: 20240201
